FAERS Safety Report 20070456 (Version 2)
Quarter: 2021Q4

REPORT INFORMATION
  Report Type: Spontaneous
  Country: AT (occurrence: AT)
  Receive Date: 20211115
  Receipt Date: 20211119
  Transmission Date: 20220304
  Serious: Yes (Hospitalization)
  Sender: FDA-Public Use
  Company Number: None

PATIENT
  Age: 27 Year
  Sex: Female

DRUGS (2)
  1. METHOTREXATE SODIUM [Interacting]
     Active Substance: METHOTREXATE SODIUM
     Indication: Polyarthritis
     Dosage: 20 MG
     Route: 065
     Dates: start: 20210620
  2. LORNOXICAM [Interacting]
     Active Substance: LORNOXICAM
     Indication: Arthropod sting
     Dosage: 1 DF TOTAL
     Route: 065
     Dates: start: 20210927, end: 20210927

REACTIONS (1)
  - Supraventricular tachycardia [Recovered/Resolved]

NARRATIVE: CASE EVENT DATE: 20211012
